FAERS Safety Report 6244261-5 (Version None)
Quarter: 2009Q2

REPORT INFORMATION
  Report Type: 
  Country: None (occurrence: None)
  Receive Date: 20090623
  Receipt Date: 20090623
  Transmission Date: 20091009
  Serious: No
  Sender: FDA-Public Use
  Company Number: None

PATIENT
  Sex: Female
  Weight: 38 kg

DRUGS (3)
  1. CIMZIA [Suspect]
     Dosage: SC
     Route: 058
     Dates: start: 20081229, end: 20081229
  2. METRONIDAZOLE [Concomitant]
  3. PREDNISONE TAB [Concomitant]

REACTIONS (2)
  - DEMYELINATION [None]
  - NEUROPATHY PERIPHERAL [None]
